FAERS Safety Report 6924239-6 (Version None)
Quarter: 2010Q3

REPORT INFORMATION
  Report Type: 
  Country: None (occurrence: None)
  Receive Date: 20100811
  Receipt Date: 20100811
  Transmission Date: 20110219
  Serious: Yes (Hospitalization)
  Sender: FDA-Public Use
  Company Number: None

PATIENT
  Age: 73 Year
  Sex: Female
  Weight: 69.8539 kg

DRUGS (15)
  1. IXABEPILONE: DAY 1, 8, 15 OF EACH CYCLE [Suspect]
     Indication: COLON CANCER METASTATIC
     Dosage: 36 MG
     Dates: start: 20100421
  2. SUNITINIB MALATE [Suspect]
     Dosage: 37.5 MG
     Dates: start: 20100428
  3. LIPITOR [Concomitant]
  4. BONIVA [Concomitant]
  5. LISINOPRIL [Concomitant]
  6. M.V.I. [Concomitant]
  7. VITAMIN B COMPLEX CAP [Concomitant]
  8. CALCIUM [Concomitant]
  9. LOVAZA [Concomitant]
  10. VITAMIN 3 [Concomitant]
  11. IRON [Concomitant]
  12. TESSALON PEARLES [Concomitant]
  13. ZOFRAN [Concomitant]
  14. COMPAZINE [Concomitant]
  15. LOMOTIL [Concomitant]

REACTIONS (3)
  - DIARRHOEA [None]
  - DYSPNOEA [None]
  - RECTAL HAEMORRHAGE [None]
